FAERS Safety Report 9366239 (Version 1)
Quarter: 2013Q2

REPORT INFORMATION
  Report Type: Spontaneous
  Country: FR (occurrence: FR)
  Receive Date: 20130625
  Receipt Date: 20130625
  Transmission Date: 20140414
  Serious: Yes (Hospitalization)
  Sender: FDA-Public Use
  Company Number: FR-PFIZER INC-2013184316

PATIENT
  Age: 41 Year
  Sex: Male

DRUGS (13)
  1. SOLU-MEDROL [Suspect]
     Dosage: 48 MG/M, 1X/DAY, DAY 114
     Route: 041
     Dates: start: 20130311, end: 20130324
  2. KIDROLASE [Suspect]
     Dosage: 6000 IU/M
     Route: 041
     Dates: start: 20130318, end: 20130318
  3. KIDROLASE [Suspect]
     Dosage: 6000 IU/M
     Route: 041
     Dates: start: 20130320, end: 20130320
  4. KIDROLASE [Suspect]
     Dosage: 6000 IU/M
     Route: 041
     Dates: start: 20130322, end: 20130322
  5. TAZOCILLINE [Concomitant]
     Indication: APLASIA
     Dosage: UNK
     Dates: start: 20130322, end: 20130409
  6. DAUNORUBICIN [Concomitant]
     Dosage: 50 MG/M DAY 1-3
     Route: 041
     Dates: start: 20130311, end: 20130313
  7. DAUNORUBICIN [Concomitant]
     Dosage: 30 MG/M
     Route: 041
     Dates: start: 20130325, end: 20130326
  8. ENDOXAN [Concomitant]
     Dosage: 750 MG/M
     Route: 041
     Dates: start: 20130311, end: 20130311
  9. ENDOXAN [Concomitant]
     Dosage: 300 MG/M/12 H
     Route: 041
     Dates: start: 20130325, end: 20130327
  10. VINCRISTINE [Concomitant]
     Dosage: 2 MG (TOTAL DOSE)
     Route: 041
     Dates: start: 20130311, end: 20130311
  11. VINCRISTINE [Concomitant]
     Dosage: 2 MG (TOTAL DOSE)
     Route: 041
     Dates: start: 20130318, end: 20130318
  12. VINCRISTINE [Concomitant]
     Dosage: 2 MG (TOTAL DOSE)
     Route: 041
     Dates: start: 20130325, end: 20130325
  13. VINCRISTINE [Concomitant]
     Dosage: 2 MG (TOTAL DOSE)
     Route: 041
     Dates: start: 20130401, end: 20130401

REACTIONS (1)
  - Vena cava thrombosis [Recovered/Resolved]
